FAERS Safety Report 4882001-2 (Version None)
Quarter: 2006Q1

REPORT INFORMATION
  Report Type: 
  Country: None (occurrence: None)
  Receive Date: 20060113
  Receipt Date: 20060113
  Transmission Date: 20060701
  Serious: Yes (Hospitalization)
  Sender: FDA-Public Use
  Company Number: None

PATIENT
  Age: 75 Year
  Sex: Male
  Weight: 57.1532 kg

DRUGS (15)
  1. ERBITUX [Suspect]
     Indication: PANCREATIC CARCINOMA
     Dosage: 250 MG/M2 IV 425 IV
     Route: 042
     Dates: start: 20051221
  2. ERBITUX [Suspect]
     Indication: PANCREATIC CARCINOMA
     Dosage: 250 MG/M2 IV 425 IV
     Route: 042
     Dates: start: 20051225
  3. ERBITUX [Suspect]
     Indication: PANCREATIC CARCINOMA
     Dosage: 250 MG/M2 IV 425 IV
     Route: 042
     Dates: start: 20060114
  4. GEMCITABINE [Suspect]
     Dosage: 200 MG /M2 IV = 340 MG IV
     Route: 042
     Dates: start: 20051228
  5. GEMCITABINE [Suspect]
     Dosage: 200 MG /M2 IV = 340 MG IV
     Route: 042
     Dates: start: 20060104
  6. PLAVIX [Concomitant]
  7. NEXIUM [Concomitant]
  8. PROZAC [Concomitant]
  9. AMBIEN [Concomitant]
  10. MIRAPEX [Concomitant]
  11. FLEXERIL [Concomitant]
  12. REGLAN [Concomitant]
  13. COLACE [Concomitant]
  14. PROPRANOLOL [Concomitant]
  15. PERCOCET [Concomitant]

REACTIONS (9)
  - ASTHENIA [None]
  - CHILLS [None]
  - CHROMATURIA [None]
  - EROSIVE OESOPHAGITIS [None]
  - HYPOVOLAEMIA [None]
  - JAUNDICE [None]
  - NAUSEA [None]
  - STENT OCCLUSION [None]
  - VOMITING [None]
